FAERS Safety Report 5449925-9 (Version None)
Quarter: 2007Q3

REPORT INFORMATION
  Report Type: 
  Country: None (occurrence: None)
  Receive Date: 20070907
  Receipt Date: 20070907
  Transmission Date: 20080115
  Serious: Yes (Other)
  Sender: FDA-Public Use
  Company Number: None

PATIENT
  Age: 47 Year
  Sex: Female
  Weight: 72.5755 kg

DRUGS (4)
  1. REMERON [Suspect]
     Indication: DEPRESSION
     Dosage: 22.5 MG QHS PO
     Route: 048
     Dates: start: 20070824, end: 20070831
  2. WELLBUTRIN [Concomitant]
  3. CYTOMEL [Concomitant]
  4. ACTIVAN [Concomitant]

REACTIONS (3)
  - CONDITION AGGRAVATED [None]
  - DEPRESSED MOOD [None]
  - UNEVALUABLE EVENT [None]
